FAERS Safety Report 6136787-X (Version None)
Quarter: 2009Q1

REPORT INFORMATION
  Report Type: 
  Country: None (occurrence: None)
  Receive Date: 20090326
  Receipt Date: 20090326
  Transmission Date: 20090719
  Serious: No
  Sender: FDA-Public Use
  Company Number: None

PATIENT
  Age: 74 Year
  Sex: Female
  Weight: 58.1 kg

DRUGS (3)
  1. FERRLECIT [Suspect]
     Indication: IRON DEFICIENCY ANAEMIA
     Dosage: 250 MG X 2 DOSES IV
     Route: 042
     Dates: start: 20090224
  2. 0.9% NACL 250ML [Suspect]
     Indication: IRON DEFICIENCY ANAEMIA
     Dosage: 250 ML WITH EACH IV IRON
     Route: 042
     Dates: start: 20090224
  3. VACUTAINER SAFETY LOK [Concomitant]

REACTIONS (2)
  - ARTHRALGIA [None]
  - PAIN IN EXTREMITY [None]
